FAERS Safety Report 9739154 (Version 1)
Quarter: 2013Q4

REPORT INFORMATION
  Report Type: Spontaneous
  Country: JP (occurrence: JP)
  Receive Date: 20131209
  Receipt Date: 20131209
  Transmission Date: 20140711
  Serious: Yes (Death)
  Sender: FDA-Public Use
  Company Number: JP-ASTELLAS-2013JP013466

PATIENT
  Age: 74 Year
  Sex: Male

DRUGS (11)
  1. FUNGUARD [Suspect]
     Indication: MENINGITIS FUNGAL
     Route: 065
  2. FUNGUARD [Suspect]
     Indication: CANDIDA INFECTION
     Route: 065
  3. FUNGUARD [Suspect]
     Indication: CANDIDA INFECTION
  4. GEMCITABINE HYDROCHLORIDE [Concomitant]
     Dosage: UNK
     Route: 065
  5. AMPHOTERICIN B [Concomitant]
     Indication: MENINGITIS FUNGAL
     Route: 065
  6. AMPHOTERICIN B [Concomitant]
     Indication: CANDIDA INFECTION
     Route: 065
  7. AMPHOTERICIN B [Concomitant]
     Indication: CANDIDA INFECTION
  8. ITRACONAZOLE [Concomitant]
     Indication: CANDIDA INFECTION
     Dosage: UNK
     Route: 048
  9. ITRACONAZOLE [Concomitant]
     Indication: CANDIDA INFECTION
  10. INSULIN [Concomitant]
     Route: 065
  11. FLUCYTOSINE [Concomitant]
     Indication: MENINGITIS FUNGAL
     Route: 065

REACTIONS (2)
  - Drug ineffective [Unknown]
  - Meningitis fungal [Fatal]
